FAERS Safety Report 5752614-4 (Version None)
Quarter: 2008Q2

REPORT INFORMATION
  Report Type: 
  Country: None (occurrence: None)
  Receive Date: 20080529
  Receipt Date: 20080529
  Transmission Date: 20081010
  Serious: Yes (Hospitalization)
  Sender: FDA-Public Use
  Company Number: FR-ABBOTT-08P-056-0452622-00

PATIENT
  Sex: Female
  Weight: 51 kg

DRUGS (10)
  1. MONOZECLAR [Suspect]
     Indication: NASOPHARYNGITIS
     Route: 048
     Dates: start: 20071122, end: 20071124
  2. FENOFIBRATE [Suspect]
     Indication: DRUG USE FOR UNKNOWN INDICATION
     Dosage: 100 MG DAILY
     Route: 048
     Dates: end: 20071124
  3. PREDNISOLONE, NAPHAZOLINE (PREDNISOLONE,NAPHAZOLINE) [Interacting]
     Indication: NASOPHARYNGITIS
     Route: 045
     Dates: start: 20071122, end: 20071124
  4. TIAPROFENIC ACID [Interacting]
     Indication: NASOPHARYNGITIS
     Dosage: 600 MG DAILY
     Route: 048
     Dates: start: 20071122, end: 20071124
  5. ACETYLCYSTEINE [Interacting]
     Indication: NASOPHARYNGITIS
     Dosage: 600 MG DAILY
     Route: 048
     Dates: start: 20071122, end: 20071124
  6. CODEIN/SULFOGAIACOL(CODEINE/SULFOGAIACOL) [Interacting]
     Indication: NASOPHARYNGITIS
     Route: 048
     Dates: start: 20071122, end: 20071124
  7. ACARBOSE [Concomitant]
     Indication: DRUG USE FOR UNKNOWN INDICATION
  8. METFORMIN HYDROCHLORIDE [Concomitant]
     Indication: DRUG USE FOR UNKNOWN INDICATION
  9. GLYBURIDE [Concomitant]
     Indication: DRUG USE FOR UNKNOWN INDICATION
  10. SULFATE OF CHONDROITINE SODIC [Concomitant]
     Indication: DRUG USE FOR UNKNOWN INDICATION
     Dosage: 500 MG DAILY

REACTIONS (3)
  - DRUG INTERACTION [None]
  - MYALGIA [None]
  - RHABDOMYOLYSIS [None]
